FAERS Safety Report 5510164-4 (Version None)
Quarter: 2007Q4

REPORT INFORMATION
  Report Type: 
  Country: None (occurrence: None)
  Receive Date: 20071108
  Receipt Date: 20071101
  Transmission Date: 20080405
  Serious: Yes (Life-Threatening, Hospitalization, Other)
  Sender: FDA-Public Use
  Company Number: DE-BRISTOL-MYERS SQUIBB COMPANY-13960620

PATIENT
  Sex: Male

DRUGS (7)
  1. REYATAZ [Suspect]
  2. NORVIR [Interacting]
  3. BUPRENORPHIN [Interacting]
  4. KIVEXA [Concomitant]
  5. CARBAMAZEPINE [Concomitant]
  6. SEROQUEL [Concomitant]
  7. TILIDINE [Concomitant]

REACTIONS (3)
  - DRUG INTERACTION [None]
  - DRUG LEVEL INCREASED [None]
  - RESPIRATORY DEPRESSION [None]
